FAERS Safety Report 9131659 (Version 2)
Quarter: 2013Q1

REPORT INFORMATION
  Report Type: Spontaneous
  Country: US (occurrence: US)
  Receive Date: 20130301
  Receipt Date: 20130318
  Transmission Date: 20140127
  Serious: Yes (Other)
  Sender: FDA-Public Use
  Company Number: US-JNJFOC-20130212184

PATIENT
  Sex: Male

DRUGS (1)
  1. XARELTO [Suspect]
     Indication: PROPHYLAXIS
     Route: 065

REACTIONS (2)
  - Hypertension [Unknown]
  - Blood creatinine increased [Unknown]
